FAERS Safety Report 8840861 (Version 1)
Quarter: 2012Q4

REPORT INFORMATION
  Report Type: 
  Country: CN (occurrence: CN)
  Receive Date: 20121015
  Receipt Date: 20121015
  Transmission Date: 20130627
  Serious: Yes (Hospitalization, Other)
  Sender: FDA-Public Use
  Company Number: PHHY2012CN074089

PATIENT
  Age: 43 Year
  Sex: Male

DRUGS (5)
  1. OXCARBAZEPINE [Suspect]
     Indication: EPILEPSY
     Dosage: 0.15 g, BID
     Route: 048
     Dates: start: 20120520, end: 20120614
  2. AMLODIPINE [Concomitant]
     Indication: BLOOD PRESSURE
     Dates: end: 20120614
  3. FOSINOPRIL SODIUM [Concomitant]
     Indication: HYPERTENSION
     Dosage: 20 mg, QD
     Route: 048
     Dates: start: 20120515, end: 20120614
  4. GLUTATHIONE [Concomitant]
     Indication: LIVER DISORDER
     Dosage: 1.2 g, QD
     Dates: start: 20120516
  5. GASMOTIN [Concomitant]
     Indication: GASTROINTESTINAL HYPOMOTILITY
     Route: 048
     Dates: start: 20120516, end: 20120614

REACTIONS (16)
  - Leukopenia [Not Recovered/Not Resolved]
  - Agranulocytosis [Not Recovered/Not Resolved]
  - Thrombocytopenia [Not Recovered/Not Resolved]
  - Cholecystitis [Not Recovered/Not Resolved]
  - Cholelithiasis [Not Recovered/Not Resolved]
  - Splenomegaly [Not Recovered/Not Resolved]
  - Renal cyst [Not Recovered/Not Resolved]
  - Electrolyte imbalance [Unknown]
  - Nosocomial infection [Recovering/Resolving]
  - Pyrexia [Not Recovered/Not Resolved]
  - Abdominal tenderness [Unknown]
  - Faeces discoloured [Unknown]
  - Liver function test abnormal [Recovering/Resolving]
  - Heart rate increased [Unknown]
  - Anaemia [Recovering/Resolving]
  - Diarrhoea [Unknown]
